FAERS Safety Report 14444716 (Version 3)
Quarter: 2018Q1

REPORT INFORMATION
  Report Type: Other
  Country: US (occurrence: US)
  Receive Date: 20180126
  Receipt Date: 20180220
  Transmission Date: 20180509
  Serious: Yes (Hospitalization, Other)
  Sender: FDA-Public Use
  Company Number: US-ACORDA-ACO_145976_2018

PATIENT
  Age: 71 Year
  Sex: Female

DRUGS (3)
  1. AMPYRA [Suspect]
     Active Substance: DALFAMPRIDINE
     Indication: MULTIPLE SCLEROSIS
     Dosage: 10 MG, Q 12 HRS
     Route: 048
     Dates: start: 201608, end: 20171010
  2. AMPYRA [Suspect]
     Active Substance: DALFAMPRIDINE
     Dosage: 10 MG, Q 12 HRS
     Route: 048
     Dates: start: 201711, end: 20171210
  3. OXYCONTIN [Suspect]
     Active Substance: OXYCODONE HYDROCHLORIDE
     Indication: PAIN
     Dosage: UNK
     Route: 065
     Dates: start: 201706, end: 20171010

REACTIONS (8)
  - Asthenia [Recovered/Resolved]
  - Pain [Unknown]
  - Delirium [Recovered/Resolved]
  - Fall [Unknown]
  - Seizure [Recovered/Resolved]
  - Drug ineffective [Unknown]
  - Cerebrovascular accident [Recovered/Resolved]
  - Pneumonia [Recovered/Resolved]

NARRATIVE: CASE EVENT DATE: 201706
